FAERS Safety Report 5622507-1 (Version None)
Quarter: 2008Q1

REPORT INFORMATION
  Report Type: 
  Country: None (occurrence: None)
  Receive Date: 20080114
  Receipt Date: 20070822
  Transmission Date: 20080703
  Serious: Yes (Hospitalization)
  Sender: FDA-Public Use
  Company Number: A03200705373

PATIENT
  Age: 73 Year
  Sex: Female

DRUGS (10)
  1. PLAVIX [Suspect]
     Indication: ANTITHROMBIN III DEFICIENCY
     Dosage: TABLET - 75 MG QD - ORAL
     Route: 048
     Dates: end: 20070701
  2. PLAVIX [Suspect]
     Indication: THROMBOPHLEBITIS
     Dosage: TABLET - 75 MG QD - ORAL
     Route: 048
     Dates: end: 20070701
  3. COUMADIN [Suspect]
     Indication: ANTITHROMBIN III DEFICIENCY
     Dosage: ORAL
     Route: 048
     Dates: start: 20070701
  4. COUMADIN [Suspect]
     Indication: THROMBOPHLEBITIS
     Dosage: ORAL
     Route: 048
     Dates: start: 20070701
  5. COUMADIN [Suspect]
     Indication: ANTITHROMBIN III DEFICIENCY
     Dosage: ORAL
     Route: 048
     Dates: end: 20070701
  6. COUMADIN [Suspect]
     Indication: THROMBOPHLEBITIS
     Dosage: ORAL
     Route: 048
     Dates: end: 20070701
  7. ASPIRIN [Suspect]
     Indication: ANTITHROMBIN III DEFICIENCY
     Dosage: ORAL
     Route: 048
     Dates: end: 20070701
  8. ASPIRIN [Suspect]
     Indication: THROMBOPHLEBITIS
     Dosage: ORAL
     Route: 048
     Dates: end: 20070701
  9. MONTEKULAST SODIUM [Concomitant]
  10. THEOPHYLLINE [Concomitant]

REACTIONS (2)
  - CEREBRAL HAEMORRHAGE [None]
  - INTERNATIONAL NORMALISED RATIO INCREASED [None]
